FAERS Safety Report 7432824-0 (Version None)
Quarter: 2011Q2

REPORT INFORMATION
  Report Type: 
  Country: None (occurrence: None)
  Receive Date: 20110422
  Receipt Date: 20110420
  Transmission Date: 20111010
  Serious: Yes (Other)
  Sender: FDA-Public Use
  Company Number: US-PERRIGO-11US000778

PATIENT
  Sex: Female
  Weight: 75.283 kg

DRUGS (6)
  1. CARVEDILOL [Concomitant]
     Indication: HYPERTENSION
     Dosage: UNK
     Route: 065
     Dates: start: 20101001
  2. DIPHENHYDRAMINE HYDROCHLORIDE 25 MG 431 [Suspect]
     Indication: INSOMNIA
     Dosage: 50 MG, SINGLE
     Route: 048
     Dates: start: 20110122, end: 20110122
  3. NORVASC [Concomitant]
     Indication: HYPERTENSION
     Dosage: UNK
     Route: 065
  4. DIPHENHYDRAMINE HYDROCHLORIDE 25 MG 431 [Suspect]
     Dosage: 50 MG, SINGLE
     Route: 048
     Dates: start: 20110125, end: 20110125
  5. METFORMIN [Concomitant]
     Indication: DIABETES MELLITUS
     Dosage: UNK
     Route: 065
     Dates: start: 20100101
  6. HYZAAR [Concomitant]
     Indication: HYPERTENSION
     Dosage: UNK
     Route: 065
     Dates: start: 20100101

REACTIONS (4)
  - PRURITUS [None]
  - EYELID OEDEMA [None]
  - RASH MACULO-PAPULAR [None]
  - HYPERSENSITIVITY [None]
